FAERS Safety Report 14021747 (Version 2)
Quarter: 2017Q4

REPORT INFORMATION
  Report Type: Report from Study
  Country: US (occurrence: US)
  Receive Date: 20170928
  Receipt Date: 20171226
  Transmission Date: 20180321
  Serious: No
  Sender: FDA-Public Use
  Company Number: US-CLOVIS ONCOLOGY-CLO-2017-001023

PATIENT
  Age: 59 Year
  Sex: Female

DRUGS (2)
  1. RUBRACA [Suspect]
     Active Substance: RUCAPARIB CAMSYLATE
     Indication: OVARIAN CANCER
     Dosage: 300 MG, BID
     Route: 048
     Dates: start: 20170825
  2. RUBRACA [Suspect]
     Active Substance: RUCAPARIB CAMSYLATE
     Dosage: 600 MG, BID
     Route: 048
     Dates: start: 201708, end: 20171020

REACTIONS (10)
  - Drug dose omission [Unknown]
  - Adverse drug reaction [Unknown]
  - Underdose [Unknown]
  - Dyspepsia [Unknown]
  - Dyspnoea [Unknown]
  - Nausea [Unknown]
  - Chest pain [Unknown]
  - Back pain [Unknown]
  - Peripheral swelling [Unknown]
  - Vomiting [Unknown]

NARRATIVE: CASE EVENT DATE: 2017
